FAERS Safety Report 18103364 (Version 1)
Quarter: 2020Q3

REPORT INFORMATION
  Report Type: Spontaneous
  Country: US (occurrence: US)
  Receive Date: 20200731
  Receipt Date: 20200731
  Transmission Date: 20201103
  Serious: Yes (Other)
  Sender: FDA-Public Use
  Company Number: None

PATIENT
  Age: 59 Year
  Sex: Female
  Weight: 98.55 kg

DRUGS (7)
  1. NEXT HAND SANITIZER [Suspect]
     Active Substance: ALCOHOL
     Indication: INFECTION PROPHYLAXIS
     Route: 061
     Dates: start: 20200712, end: 20200726
  2. ATENENOL [Concomitant]
  3. MULTIPLE VITIAM [Concomitant]
  4. NORVASC [Concomitant]
     Active Substance: AMLODIPINE BESYLATE
  5. CPAP [Concomitant]
     Active Substance: DEVICE
  6. METFORMIN [Concomitant]
     Active Substance: METFORMIN HYDROCHLORIDE
  7. ASA [Concomitant]
     Active Substance: ASPIRIN

REACTIONS (3)
  - Nausea [None]
  - Headache [None]
  - Feeling hot [None]

NARRATIVE: CASE EVENT DATE: 20200712
